FAERS Safety Report 13297084 (Version 1)
Quarter: 2017Q1

REPORT INFORMATION
  Report Type: Spontaneous
  Country: US (occurrence: US)
  Receive Date: 20170306
  Receipt Date: 20170306
  Transmission Date: 20170428
  Serious: Yes (Hospitalization)
  Sender: FDA-Public Use
  Company Number: US-STRIDES ARCOLAB LIMITED-2017SP003642

PATIENT

DRUGS (1)
  1. IBUPROFEN. [Suspect]
     Active Substance: IBUPROFEN
     Indication: PRODUCT USED FOR UNKNOWN INDICATION
     Dosage: UNK (4-5 TIMES A DAY)
     Route: 065

REACTIONS (5)
  - Contusion [Unknown]
  - Haematuria [Unknown]
  - Unmasking of previously unidentified disease [Unknown]
  - Ecchymosis [Unknown]
  - Vitamin K deficiency [Unknown]
